FAERS Safety Report 4437169-9 (Version None)
Quarter: 2004Q3

REPORT INFORMATION
  Report Type: 
  Country: None (occurrence: None)
  Receive Date: 20040830
  Receipt Date: 20040727
  Transmission Date: 20050211
  Serious: Yes (Other)
  Sender: FDA-Public Use
  Company Number: PHEH2004US08310

PATIENT
  Age: 48 Year
  Sex: Male
  Weight: 98 kg

DRUGS (1)
  1. CLOZARIL [Suspect]
     Dosage: 200 MG/DAY
     Route: 048
     Dates: end: 20020201

REACTIONS (3)
  - ANAEMIA [None]
  - COLON CANCER [None]
  - SURGERY [None]
